FAERS Safety Report 10674202 (Version 5)
Quarter: 2015Q4

REPORT INFORMATION
  Report Type: Report from Study
  Country: US (occurrence: US)
  Receive Date: 20141224
  Receipt Date: 20151102
  Transmission Date: 20160304
  Serious: Yes (Disabling, Other)
  Sender: FDA-Public Use
  Company Number: US-SANOFI-AVENTIS-2013SA060037

PATIENT
  Age: 57 Year
  Sex: Female
  Weight: 86.18 kg

DRUGS (21)
  1. ADDERALL [Concomitant]
     Active Substance: AMPHETAMINE ASPARTATE\AMPHETAMINE SULFATE\DEXTROAMPHETAMINE SACCHARATE\DEXTROAMPHETAMINE SULFATE
     Dosage: STRENGTH: 20 MG
     Route: 048
  2. TOPAMAX [Concomitant]
     Active Substance: TOPIRAMATE
     Dosage: STRENGTH: 25 MG?1 TAB BID FOR 4 DAYS, THEN 2 TABS BID
  3. KEFLEX [Concomitant]
     Active Substance: CEPHALEXIN
     Dosage: STRENGTH: 500 MG
     Route: 048
  4. VITAMIN D [Concomitant]
     Active Substance: CHOLECALCIFEROL
     Dosage: STRENGTH: 1000 UNIT
     Route: 048
  5. KLONOPIN [Concomitant]
     Active Substance: CLONAZEPAM
     Dosage: 2-3 TABLETS AT BEDTIME
  6. AUBAGIO [Suspect]
     Active Substance: TERIFLUNOMIDE
     Indication: SECONDARY PROGRESSIVE MULTIPLE SCLEROSIS
     Route: 048
     Dates: start: 20130109
  7. MAGNESIUM [Concomitant]
     Active Substance: MAGNESIUM
     Dosage: STRENGTH: 250 MG
     Route: 048
  8. SINEMET [Concomitant]
     Active Substance: CARBIDOPA\LEVODOPA
     Indication: RESTLESS LEGS SYNDROME
     Dosage: STRENGTH: 25-100
  9. EFFEXOR [Concomitant]
     Active Substance: VENLAFAXINE HYDROCHLORIDE
     Dosage: STRENGTH:75 MG
     Route: 048
  10. CALCIUM CARBONATE. [Concomitant]
     Active Substance: CALCIUM CARBONATE
     Dosage: STRENGTH: 1250 MG
     Route: 048
  11. LOVENOX [Concomitant]
     Active Substance: ENOXAPARIN SODIUM
     Route: 058
  12. MYRBETRIQ [Concomitant]
     Active Substance: MIRABEGRON
     Dosage: STRENGTH: 50 MG
  13. DELTASONE [Concomitant]
     Active Substance: PREDNISONE
  14. VALTREX [Concomitant]
     Active Substance: VALACYCLOVIR HYDROCHLORIDE
     Indication: ORAL HERPES
     Route: 048
  15. NEURONTIN [Concomitant]
     Active Substance: GABAPENTIN
     Dosage: STRENGTH: 300 MG; 2 TAB IN AM AND 2 AT NOON AND 3 AT NIGHT.
  16. SYNTHROID [Concomitant]
     Active Substance: LEVOTHYROXINE SODIUM
     Dosage: STRENGTH: 100 MCG
  17. VITAMIN B12 [Concomitant]
     Active Substance: CYANOCOBALAMIN
     Dosage: STRENGTH:1500MCG
     Route: 048
  18. LYRICA [Concomitant]
     Active Substance: PREGABALIN
  19. ZANAFLEX [Concomitant]
     Active Substance: TIZANIDINE HYDROCHLORIDE
     Dosage: STRENGTH: 2 MG
  20. WARFARIN [Concomitant]
     Active Substance: WARFARIN
     Dosage: STRENGTH: 5 MG
  21. DESYREL [Concomitant]
     Active Substance: TRAZODONE HYDROCHLORIDE
     Indication: INSOMNIA
     Dosage: STRENGTH: 50 MG?TAKE 1 TAB BY MOUTH NIGHTLY AS?NEEDED FOR INSOMNIA
     Route: 048

REACTIONS (13)
  - Nasopharyngitis [Not Recovered/Not Resolved]
  - Condition aggravated [Unknown]
  - Rhinitis [Unknown]
  - Sinusitis [Not Recovered/Not Resolved]
  - Depressed mood [Unknown]
  - Unevaluable event [Unknown]
  - Peroneal nerve palsy [Unknown]
  - Gait disturbance [Not Recovered/Not Resolved]
  - Deafness [Unknown]
  - Dry throat [Not Recovered/Not Resolved]
  - Amnesia [Not Recovered/Not Resolved]
  - Dysstasia [Unknown]
  - Tinnitus [Unknown]

NARRATIVE: CASE EVENT DATE: 2014
